FAERS Safety Report 17950998 (Version 3)
Quarter: 2020Q3

REPORT INFORMATION
  Report Type: Spontaneous
  Country: CN (occurrence: CN)
  Receive Date: 20200626
  Receipt Date: 20200714
  Transmission Date: 20201103
  Serious: Yes (Other)
  Sender: FDA-Public Use
  Company Number: CN-ASTRAZENECA-2020SE80025

PATIENT
  Age: 83 Year
  Sex: Female

DRUGS (2)
  1. CEFTIZOXIME [Interacting]
     Active Substance: CEFTIZOXIME
     Indication: CATARRH
     Route: 065
     Dates: start: 202005, end: 20200619
  2. IRESSA [Suspect]
     Active Substance: GEFITINIB
     Indication: LUNG NEOPLASM MALIGNANT
     Dosage: A TABLET DAILY
     Route: 048
     Dates: start: 202006, end: 20200619

REACTIONS (6)
  - Anaphylactic shock [Recovering/Resolving]
  - Renal impairment [Recovering/Resolving]
  - Drug interaction [Unknown]
  - Shock [Recovering/Resolving]
  - Palpitations [Recovering/Resolving]
  - Chills [Recovering/Resolving]

NARRATIVE: CASE EVENT DATE: 20200618
